FAERS Safety Report 9215081 (Version 1)
Quarter: 2013Q2

REPORT INFORMATION
  Report Type: Spontaneous
  Country: GB (occurrence: GB)
  Receive Date: 20130405
  Receipt Date: 20130405
  Transmission Date: 20140414
  Serious: Yes (Disabling)
  Sender: FDA-Public Use
  Company Number: PHHY2013GB032191

PATIENT
  Age: 53 Year
  Sex: Female
  Weight: 75 kg

DRUGS (13)
  1. SERTRALINE [Suspect]
     Indication: DEPRESSION
     Dosage: 50 MG, UNK
     Route: 048
     Dates: start: 20130301, end: 20130304
  2. GABAPENTIN [Concomitant]
  3. SALBUTAMOL [Concomitant]
  4. RAMIPRIL [Concomitant]
  5. QVAR [Concomitant]
  6. DIAZEPAM [Concomitant]
  7. DIHYDROCODEINE [Concomitant]
     Indication: DRUG DEPENDENCE
     Dates: start: 20130221
  8. SUBUTEX [Concomitant]
  9. AMOXICILLIN [Concomitant]
     Indication: ASTHMA
     Dates: start: 201301
  10. FLUCONAZOLE [Concomitant]
     Indication: ORAL CANDIDIASIS
     Dates: start: 20130131
  11. PREDNISOLONE [Concomitant]
     Indication: ASTHMA
     Dates: start: 201301
  12. DOSULEPIN [Concomitant]
     Dosage: 150 MG, QD
  13. DOSULEPIN [Concomitant]
     Dosage: 75 MG, QD
     Dates: start: 20130221

REACTIONS (9)
  - Serotonin syndrome [Recovered/Resolved]
  - Mania [Recovered/Resolved]
  - Hallucination, olfactory [Recovered/Resolved]
  - Vomiting [Recovered/Resolved]
  - Insomnia [Recovered/Resolved]
  - Dizziness [Recovered/Resolved]
  - Hyperhidrosis [Recovered/Resolved]
  - Diarrhoea [Recovered/Resolved]
  - Medication error [Unknown]
